FAERS Safety Report 8539274-4 (Version None)
Quarter: 2012Q3

REPORT INFORMATION
  Report Type: 
  Country: None (occurrence: None)
  Receive Date: 20120726
  Receipt Date: 20120719
  Transmission Date: 20120928
  Serious: Yes (Other)
  Sender: FDA-Public Use
  Company Number: GB-PFIZER INC-2012174519

PATIENT
  Sex: Male

DRUGS (3)
  1. PARACETAMOL [Concomitant]
     Indication: PAIN
     Dosage: 1 G 4 TIMES A DAY AS NECESSARY
     Route: 048
     Dates: start: 20120201, end: 20120201
  2. ENOXAPARIN [Concomitant]
     Indication: THROMBOSIS PROPHYLAXIS
     Dosage: UNK
     Route: 058
     Dates: start: 20120201, end: 20120201
  3. PHENYTOIN SODIUM [Suspect]
     Indication: CONVULSION
     Dosage: 300 MG, UNK
     Route: 048
     Dates: start: 20120201, end: 20120601

REACTIONS (2)
  - PAIN [None]
  - TENDONITIS [None]
